FAERS Safety Report 9470704 (Version 1)
Quarter: 2013Q3

REPORT INFORMATION
  Report Type: Spontaneous
  Country: US (occurrence: US)
  Receive Date: 20130822
  Receipt Date: 20130822
  Transmission Date: 20140515
  Serious: No
  Sender: FDA-Public Use
  Company Number: US-009507513-1308USA010159

PATIENT
  Age: 17 Year
  Sex: Female
  Weight: 83.45 kg

DRUGS (2)
  1. MIRALAX [Suspect]
     Indication: PRODUCT USED FOR UNKNOWN INDICATION
     Dosage: 206 G, ONCE
     Route: 048
     Dates: start: 20130810
  2. MIRALAX [Suspect]
     Dosage: 17 G, BID
     Route: 048

REACTIONS (2)
  - Overdose [Not Recovered/Not Resolved]
  - Inappropriate schedule of drug administration [Unknown]
